FAERS Safety Report 22374142 (Version 1)
Quarter: 2023Q2

REPORT INFORMATION
  Report Type: Spontaneous
  Country: US (occurrence: US)
  Receive Date: 20230526
  Receipt Date: 20230526
  Transmission Date: 20230722
  Serious: Yes (Death)
  Sender: FDA-Public Use
  Company Number: US-TEVA-2023-US-2889877

PATIENT
  Age: 89 Year
  Sex: Female

DRUGS (1)
  1. AJOVY [Suspect]
     Active Substance: FREMANEZUMAB-VFRM
     Indication: Migraine with aura
     Dosage: 7.5 MILLIGRAM DAILY; DOSE:225/1.5 MG/ML, ONCE MONTHLY
     Route: 065

REACTIONS (1)
  - Death [Fatal]
